FAERS Safety Report 24428187 (Version 1)
Quarter: 2024Q4

REPORT INFORMATION
  Report Type: Spontaneous
  Country: US (occurrence: None)
  Receive Date: 20241010
  Receipt Date: 20241010
  Transmission Date: 20250114
  Serious: Yes (Life-Threatening, Hospitalization)
  Sender: Public
  Company Number: None

PATIENT
  Age: 72 Year
  Sex: Female
  Weight: 80.7 kg

DRUGS (1)
  1. ENHERTU [Suspect]
     Active Substance: FAM-TRASTUZUMAB DERUXTECAN-NXKI
     Indication: Endometrial cancer
     Dosage: FREQUENCY : EVERY THREE WEEKS;?
     Route: 042
     Dates: start: 20240829, end: 20241003

REACTIONS (3)
  - Neutropenia [None]
  - Thrombocytopenia [None]
  - Anaemia [None]

NARRATIVE: CASE EVENT DATE: 20240909
